FAERS Safety Report 7201295-1 (Version None)
Quarter: 2010Q4

REPORT INFORMATION
  Report Type: 
  Country: None (occurrence: None)
  Receive Date: 20101227
  Receipt Date: 20101227
  Transmission Date: 20110411
  Serious: Yes (Hospitalization, Other)
  Sender: FDA-Public Use
  Company Number: None

PATIENT
  Age: 20 Year
  Sex: Female
  Weight: 62.1428 kg

DRUGS (1)
  1. METRONIDAZOLE [Suspect]
     Indication: TRICHOMONIASIS
     Dosage: 1 DAILY PO
     Route: 048
     Dates: start: 20100421, end: 20100428

REACTIONS (1)
  - EPILEPSY [None]
